FAERS Safety Report 14259229 (Version 4)
Quarter: 2019Q1

REPORT INFORMATION
  Report Type: Spontaneous
  Country: DE (occurrence: DE)
  Receive Date: 20171207
  Receipt Date: 20190103
  Transmission Date: 20190417
  Serious: Yes (Disabling)
  Sender: FDA-Public Use
  Company Number: DE-GUERBET-DE-20170150

PATIENT
  Age: 47 Year
  Sex: Male
  Weight: 72 kg

DRUGS (2)
  1. DOTAREM [Suspect]
     Active Substance: GADOTERATE MEGLUMINE
     Indication: NUCLEAR MAGNETIC RESONANCE IMAGING
     Route: 065
     Dates: start: 20160714, end: 20160714
  2. NIVOLUMAB [Concomitant]
     Active Substance: NIVOLUMAB
     Indication: ADJUVANT THERAPY
     Route: 065
     Dates: start: 20160209, end: 201702

REACTIONS (19)
  - Bradyphrenia [Recovering/Resolving]
  - Stress [Unknown]
  - Dyspnoea [Unknown]
  - Injection site pain [Recovered/Resolved]
  - Flank pain [Unknown]
  - Chest pain [Not Recovered/Not Resolved]
  - Dyskinesia [Unknown]
  - Disturbance in attention [Recovering/Resolving]
  - Paraesthesia [Unknown]
  - Impaired work ability [Unknown]
  - Lethargy [Unknown]
  - Arthralgia [Not Recovered/Not Resolved]
  - Product residue present [Unknown]
  - Speech disorder [Recovering/Resolving]
  - Injection site oedema [Recovered/Resolved]
  - Feeling abnormal [Unknown]
  - Headache [Recovering/Resolving]
  - Pain in extremity [Not Recovered/Not Resolved]
  - Abdominal pain [Unknown]

NARRATIVE: CASE EVENT DATE: 201607
